FAERS Safety Report 17811944 (Version 1)
Quarter: 2020Q2

REPORT INFORMATION
  Report Type: Spontaneous
  Country: US (occurrence: US)
  Receive Date: 20200521
  Receipt Date: 20200521
  Transmission Date: 20200714
  Serious: No
  Sender: FDA-Public Use
  Company Number: US-ASTRAZENECA-2020SE61940

PATIENT
  Age: 1067 Month
  Sex: Male
  Weight: 59.4 kg

DRUGS (3)
  1. LASIX [Concomitant]
     Active Substance: FUROSEMIDE
     Indication: SWELLING
     Dates: start: 202004
  2. TAGRISSO [Suspect]
     Active Substance: OSIMERTINIB
     Indication: LUNG NEOPLASM MALIGNANT
     Route: 048
     Dates: start: 20200404, end: 20200422
  3. GENERIC KEPPRA [Concomitant]
     Active Substance: LEVETIRACETAM
     Indication: SEIZURE PROPHYLAXIS

REACTIONS (11)
  - Eye infection [Unknown]
  - Cough [Recovering/Resolving]
  - Fatigue [Unknown]
  - Peripheral swelling [Recovering/Resolving]
  - Condition aggravated [Unknown]
  - Insomnia [Recovering/Resolving]
  - Photophobia [Unknown]
  - Dyspnoea [Unknown]
  - Asthenia [Unknown]
  - Rash macular [Not Recovered/Not Resolved]
  - Drug ineffective [Unknown]

NARRATIVE: CASE EVENT DATE: 202004
